FAERS Safety Report 6055979-1 (Version None)
Quarter: 2009Q1

REPORT INFORMATION
  Report Type: 
  Country: None (occurrence: None)
  Receive Date: 20090128
  Receipt Date: 20090123
  Transmission Date: 20090719
  Serious: No
  Sender: FDA-Public Use
  Company Number: US-B.I. PHARMACEUTICALS,INC./RIDGEFIELD-2009-BP-00848BP

PATIENT
  Age: 35 Year
  Sex: Male

DRUGS (1)
  1. FLOMAX [Suspect]
     Indication: URINE FLOW DECREASED
     Dosage: .4MG
     Route: 048
     Dates: start: 20081001, end: 20090121

REACTIONS (1)
  - DIZZINESS [None]
